FAERS Safety Report 8982135 (Version 4)
Quarter: 2015Q1

REPORT INFORMATION
  Report Type: Spontaneous
  Country: CA (occurrence: CA)
  Receive Date: 20121222
  Receipt Date: 20150130
  Transmission Date: 20150721
  Serious: Yes (Other)
  Sender: FDA-Public Use
  Company Number: CA-BAUSCH-BL-2012-002246

PATIENT
  Age: 21 Year

DRUGS (4)
  1. BESIVANCE [Suspect]
     Active Substance: BESIFLOXACIN
     Indication: POSTOPERATIVE CARE
     Dosage: FOUR TIMES DAILY
     Route: 047
     Dates: start: 20121101, end: 20121109
  2. LOTEMAX [Suspect]
     Active Substance: LOTEPREDNOL ETABONATE
     Indication: POSTOPERATIVE CARE
     Dosage: FOUR TIMES DAILY
     Route: 047
     Dates: start: 20121101, end: 20121109
  3. LIPOSIC OPHTHALMIC DROPS [Suspect]
     Active Substance: CARBOMER
     Indication: POSTOPERATIVE CARE
     Dosage: FOUR TIMES DAILY
     Route: 047
     Dates: start: 20121101, end: 20121109
  4. LOTEMAX [Suspect]
     Active Substance: LOTEPREDNOL ETABONATE
     Route: 047
     Dates: start: 20121122

REACTIONS (15)
  - Medication residue present [Unknown]
  - Corneal deposits [Unknown]
  - Intentional product use issue [Recovered/Resolved]
  - Photophobia [Not Recovered/Not Resolved]
  - Corneal scar [Not Recovered/Not Resolved]
  - Eye irritation [Not Recovered/Not Resolved]
  - Corneal oedema [Not Recovered/Not Resolved]
  - Punctate keratitis [Unknown]
  - Corneal striae [Unknown]
  - Ulcerative keratitis [Unknown]
  - Diffuse lamellar keratitis [Unknown]
  - Corneal infiltrates [Unknown]
  - Vision blurred [Not Recovered/Not Resolved]
  - Visual acuity reduced [Not Recovered/Not Resolved]
  - Dry eye [Not Recovered/Not Resolved]

NARRATIVE: CASE EVENT DATE: 20121101
